FAERS Safety Report 18465982 (Version 3)
Quarter: 2021Q1

REPORT INFORMATION
  Report Type: Report from Study
  Country: CL (occurrence: CL)
  Receive Date: 20201105
  Receipt Date: 20210219
  Transmission Date: 20210419
  Serious: Yes (Disabling, Other)
  Sender: FDA-Public Use
  Company Number: CL-BRISTOL-MYERS SQUIBB COMPANY-BMS-2020-092511

PATIENT
  Age: 58 Year
  Sex: Female

DRUGS (1)
  1. ABATACEPT [Suspect]
     Active Substance: ABATACEPT
     Indication: RHEUMATOID ARTHRITIS
     Dosage: 125 MILLIGRAM EVERY 7 DAYS
     Route: 058
     Dates: start: 20190820, end: 20201028

REACTIONS (3)
  - Haemoptysis [Not Recovered/Not Resolved]
  - Tuberculosis [Unknown]
  - Benign mediastinal neoplasm [Unknown]

NARRATIVE: CASE EVENT DATE: 202010
